FAERS Safety Report 15110185 (Version 1)
Quarter: 2018Q3

REPORT INFORMATION
  Report Type: Spontaneous
  Country: FR (occurrence: FR)
  Receive Date: 20180705
  Receipt Date: 20180705
  Transmission Date: 20181010
  Serious: Yes (Other)
  Sender: FDA-Public Use
  Company Number: FR-TEVA-2018-FR-920084

PATIENT
  Age: 50 Year
  Sex: Female

DRUGS (3)
  1. DEPAKINE 500 MG [Concomitant]
     Indication: EPILEPSY
     Dosage: 2 DOSAGE FORMS DAILY;
  2. DEPAKINE 500 MG [Concomitant]
     Dosage: 1 DOSAGE FORMS DAILY; DURING RAMADAN
  3. COPAXONE [Suspect]
     Active Substance: GLATIRAMER ACETATE
     Indication: MULTIPLE SCLEROSIS
     Dosage: STARTED 3 MONTHS AGO
     Route: 058

REACTIONS (7)
  - Injection site pain [Recovered/Resolved]
  - Tachycardia [Recovered/Resolved]
  - Epilepsy [Unknown]
  - Anxiety [Recovered/Resolved]
  - Joint ankylosis [Unknown]
  - Erythema [Recovered/Resolved]
  - Dyspnoea [Recovered/Resolved]

NARRATIVE: CASE EVENT DATE: 20180625
